FAERS Safety Report 20177241 (Version 1)
Quarter: 2021Q4

REPORT INFORMATION
  Report Type: Spontaneous
  Country: US (occurrence: None)
  Receive Date: 20211211
  Receipt Date: 20211211
  Transmission Date: 20220303
  Serious: Yes (Hospitalization)
  Sender: FDA-Public Use
  Company Number: None

PATIENT
  Age: 58 Year
  Sex: Male

DRUGS (2)
  1. MEKTOVI [Suspect]
     Active Substance: BINIMETINIB
     Indication: Metastatic malignant melanoma
     Dosage: FREQUENCY : TWICE A DAY;?
     Route: 048
  2. BRAFTOVI [Suspect]
     Active Substance: ENCORAFENIB
     Indication: Metastatic malignant melanoma
     Dosage: FREQUENCY : DAILY;?
     Route: 048

REACTIONS (9)
  - Fatigue [None]
  - Gait disturbance [None]
  - Headache [None]
  - Muscular weakness [None]
  - Amnesia [None]
  - Malignant neoplasm progression [None]
  - Metastases to bone [None]
  - Metastases to central nervous system [None]
  - Metastases to liver [None]

NARRATIVE: CASE EVENT DATE: 20211209
